FAERS Safety Report 25873288 (Version 1)
Quarter: 2025Q4

REPORT INFORMATION
  Report Type: Spontaneous
  Country: CN (occurrence: CN)
  Receive Date: 20251002
  Receipt Date: 20251002
  Transmission Date: 20260117
  Serious: Yes (Hospitalization, Other)
  Sender: PFIZER
  Company Number: CN-PFIZER INC-PV202500116051

PATIENT
  Age: 62 Year
  Sex: Female
  Weight: 66 kg

DRUGS (4)
  1. METHOTREXATE SODIUM [Suspect]
     Active Substance: METHOTREXATE SODIUM
     Indication: Plasmablastic lymphoma
     Dosage: 5300 MG, 1X/DAY
     Route: 041
     Dates: start: 20250906, end: 20250906
  2. CYTARABINE [Suspect]
     Active Substance: CYTARABINE
     Indication: Lymphoma
     Dosage: 3 G, 2X/DAY
     Route: 041
     Dates: start: 20250907, end: 20250908
  3. LEUCOVORIN CALCIUM [Concomitant]
     Active Substance: LEUCOVORIN CALCIUM
     Indication: Therapeutic procedure
     Dosage: 37 MG, 4X/DAY
     Route: 030
     Dates: start: 20250907, end: 20250915
  4. PANTOPRAZOLE SODIUM [Concomitant]
     Active Substance: PANTOPRAZOLE SODIUM
     Indication: Chemotherapy
     Dosage: 40 MG, 1X/DAY
     Route: 041
     Dates: start: 20250906, end: 20250908

REACTIONS (2)
  - Myelosuppression [Recovering/Resolving]
  - Acute kidney injury [Recovering/Resolving]

NARRATIVE: CASE EVENT DATE: 20250907
